FAERS Safety Report 5004084-1 (Version None)
Quarter: 2006Q2

REPORT INFORMATION
  Report Type: 
  Country: None (occurrence: None)
  Receive Date: 20060517
  Receipt Date: 20060509
  Transmission Date: 20061013
  Serious: Yes (Death, Hospitalization)
  Sender: FDA-Public Use
  Company Number: US-SANOFI-SYNTHELABO-A03200602931

PATIENT
  Sex: Male
  Weight: 63.49 kg

DRUGS (1)
  1. PLAVIX [Suspect]
     Dosage: UNK
     Route: 048

REACTIONS (2)
  - HYPOTENSION [None]
  - RESPIRATORY FAILURE [None]
